FAERS Safety Report 4936205-0 (Version None)
Quarter: 2006Q1

REPORT INFORMATION
  Report Type: 
  Country: None (occurrence: None)
  Receive Date: 20060307
  Receipt Date: 20051205
  Transmission Date: 20060701
  Serious: No
  Sender: FDA-Public Use
  Company Number: US-GLAXOSMITHKLINE-A0584678A

PATIENT
  Age: 48 Year
  Sex: Female

DRUGS (7)
  1. REQUIP [Suspect]
     Indication: RESTLESS LEGS SYNDROME
     Dosage: .75MG PER DAY
     Route: 048
     Dates: start: 20051122
  2. PROZAC [Concomitant]
  3. LITHIUM [Concomitant]
  4. TRAZODONE [Concomitant]
  5. CLONAZEPAM [Concomitant]
  6. VIT D [Concomitant]
  7. THYROID REPLACEMENT [Concomitant]

REACTIONS (4)
  - AMNESIA [None]
  - FATIGUE [None]
  - NAUSEA [None]
  - VOMITING PROJECTILE [None]
